FAERS Safety Report 11811063 (Version 1)
Quarter: 2015Q4

REPORT INFORMATION
  Report Type: Spontaneous
  Country: US (occurrence: US)
  Receive Date: 20151208
  Receipt Date: 20151208
  Transmission Date: 20160305
  Serious: No
  Sender: FDA-Public Use
  Company Number: US-SHIRE-US-002284

PATIENT
  Age: 52 Year
  Sex: Female
  Weight: 108 kg

DRUGS (12)
  1. LYRICA [Concomitant]
     Active Substance: PREGABALIN
     Indication: PARAESTHESIA
     Dosage: [PRN]
     Dates: start: 2011
  2. CALCITRIOL. [Suspect]
     Active Substance: CALCITRIOL
     Indication: HYPOCALCAEMIA
     Dosage: 0.5 ?G, 2X/DAY:BID
     Dates: start: 2011, end: 20150721
  3. VITAMIN D [Concomitant]
     Active Substance: CHOLECALCIFEROL
     Indication: HYPOCALCAEMIA
     Dates: start: 2011
  4. CALCITRIOL. [Suspect]
     Active Substance: CALCITRIOL
     Dosage: 0.5 ?G, 1X/DAY:QD
     Dates: start: 20150721
  5. LOSARTAN. [Concomitant]
     Active Substance: LOSARTAN
     Indication: HYPERTENSION
     Dates: start: 2013
  6. CALCITRIOL. [Suspect]
     Active Substance: CALCITRIOL
     Dosage: [DF] DOSE REDUCED DUE TO SIDE EFFECTS
  7. MELOXICAM. [Concomitant]
     Active Substance: MELOXICAM
     Indication: PLANTAR FASCIITIS
     Dates: start: 2015
  8. SYNTHROID [Concomitant]
     Active Substance: LEVOTHYROXINE SODIUM
     Indication: HYPOTHYROIDISM
     Dates: start: 2011
  9. CALCIUM [Concomitant]
     Active Substance: CALCIUM
     Indication: HYPOCALCAEMIA
     Dates: start: 2011
  10. NATPARA (PARATHYROID HORMONE) [Suspect]
     Active Substance: PARATHYROID HORMONE
     Indication: HYPOPARATHYROIDISM
     Dosage: 50 ?G, 1X/DAY:QD
     Route: 058
     Dates: start: 20150706, end: 2015
  11. PAROXETINE [Concomitant]
     Active Substance: PAROXETINE\PAROXETINE HYDROCHLORIDE
     Indication: HOT FLUSH
  12. NATPARA (PARATHYROID HORMONE) [Suspect]
     Active Substance: PARATHYROID HORMONE
     Dosage: UNK
     Route: 058
     Dates: start: 20150721

REACTIONS (10)
  - Renal pain [Recovered/Resolved]
  - Arthralgia [Recovered/Resolved]
  - Muscle twitching [Not Recovered/Not Resolved]
  - Myalgia [Recovered/Resolved]
  - Back pain [Recovered/Resolved]
  - Headache [Recovered/Resolved]
  - Musculoskeletal pain [Recovered/Resolved]
  - Blood thyroid stimulating hormone increased [Unknown]
  - Dysgeusia [Not Recovered/Not Resolved]
  - Adverse drug reaction [Unknown]

NARRATIVE: CASE EVENT DATE: 2015
